FAERS Safety Report 4687979-8 (Version None)
Quarter: 2005Q2

REPORT INFORMATION
  Report Type: 
  Country: None (occurrence: None)
  Receive Date: 20050610
  Receipt Date: 20050603
  Transmission Date: 20051028
  Serious: Yes (Other)
  Sender: FDA-Public Use
  Company Number: PHEH2005US06302

PATIENT
  Age: 10 Year
  Sex: Female

DRUGS (5)
  1. TRILEPTAL [Suspect]
     Indication: ATTENTION DEFICIT/HYPERACTIVITY DISORDER
     Dosage: 475 MG, QD
     Route: 048
     Dates: start: 20030601
  2. DEXEDRINE [Concomitant]
     Dosage: 5 MG, BID
     Route: 048
  3. ABILIFY [Concomitant]
     Dosage: 5 MG, UNK
  4. WELLBUTRIN XL [Suspect]
     Dosage: 300 MG, QD
     Route: 048
  5. WELLBUTRIN XL [Suspect]
     Dosage: 150 MG, QD
     Route: 048

REACTIONS (2)
  - CONVULSION [None]
  - ELECTROENCEPHALOGRAM ABNORMAL [None]
